FAERS Safety Report 23471694 (Version 9)
Quarter: 2025Q2

REPORT INFORMATION
  Report Type: Other
  Country: US (occurrence: US)
  Receive Date: 20240202
  Receipt Date: 20250606
  Transmission Date: 20250716
  Serious: Yes (Other)
  Sender: TRAVERE THERAPEUTICS
  Company Number: US-TRAVERE-2024TVT00038

PATIENT
  Age: 69 Year
  Sex: Male

DRUGS (9)
  1. FILSPARI [Suspect]
     Active Substance: SPARSENTAN
     Indication: IgA nephropathy
     Route: 048
     Dates: start: 20240104
  2. FILSPARI [Suspect]
     Active Substance: SPARSENTAN
     Indication: Haematuria
     Route: 048
     Dates: start: 20240120
  3. FILSPARI [Suspect]
     Active Substance: SPARSENTAN
     Dosage: BACK TO 200MG
     Route: 048
     Dates: start: 202401
  4. FARXIGA [Suspect]
     Active Substance: DAPAGLIFLOZIN PROPANEDIOL
     Indication: Product used for unknown indication
  5. METOPROLOL SUCCINATE [Concomitant]
     Active Substance: METOPROLOL SUCCINATE
  6. ROSUVASTATIN CALCIUM [Concomitant]
     Active Substance: ROSUVASTATIN CALCIUM
  7. CYANOCOBALAMIN [Concomitant]
     Active Substance: CYANOCOBALAMIN
  8. EZETIMIBE [Concomitant]
     Active Substance: EZETIMIBE
  9. TAMSULOSIN HYDROCHLORIDE [Concomitant]
     Active Substance: TAMSULOSIN HYDROCHLORIDE

REACTIONS (18)
  - Nasal disorder [Unknown]
  - Blood pressure decreased [None]
  - Glomerular filtration rate decreased [None]
  - Rash [Unknown]
  - Pruritus [Unknown]
  - Oxygen saturation decreased [Unknown]
  - Vision blurred [Unknown]
  - General physical health deterioration [Unknown]
  - Weight decreased [Unknown]
  - Peripheral swelling [Recovered/Resolved]
  - Stress [Recovered/Resolved]
  - Blood creatinine increased [None]
  - Body temperature decreased [Unknown]
  - Liver disorder [Unknown]
  - Hypertension [Unknown]
  - Blood bilirubin increased [Unknown]
  - Red blood cell count increased [Unknown]
  - Haemoglobin increased [Unknown]

NARRATIVE: CASE EVENT DATE: 20240801
